FAERS Safety Report 4689233-7 (Version None)
Quarter: 2005Q2

REPORT INFORMATION
  Report Type: 
  Country: None (occurrence: None)
  Receive Date: 20050608
  Receipt Date: 20050202
  Transmission Date: 20051028
  Serious: No
  Sender: FDA-Public Use
  Company Number: 2005-BP-01151BP

PATIENT
  Age: 66 Year
  Sex: Female

DRUGS (8)
  1. SPIRIVA [Suspect]
     Indication: CHRONIC OBSTRUCTIVE PULMONARY DISEASE
     Dosage: 18 MCG (18 MCG), IH
     Route: 055
     Dates: start: 20041001
  2. SPIRIVA [Suspect]
     Indication: CHRONIC OBSTRUCTIVE PULMONARY DISEASE
     Dosage: 18 MCG (18 MCG), IH
     Route: 055
     Dates: start: 20041001
  3. ALBUTEROL [Concomitant]
  4. TAMOXIFEN CITRATE [Concomitant]
  5. ZYRTEC [Concomitant]
  6. TEMAZEPAM [Concomitant]
  7. TOPROL-XL [Concomitant]
  8. ZANAFLEX [Concomitant]

REACTIONS (5)
  - DYSGEUSIA [None]
  - DYSPNOEA EXACERBATED [None]
  - FEELING JITTERY [None]
  - NERVOUSNESS [None]
  - RESPIRATORY TRACT INFECTION [None]
